FAERS Safety Report 8833683 (Version 1)
Quarter: 2012Q4

REPORT INFORMATION
  Report Type: 
  Country: US (occurrence: US)
  Receive Date: 20121010
  Receipt Date: 20121010
  Transmission Date: 20130627
  Serious: No
  Sender: FDA-Public Use
  Company Number: US-VERTEX PHARMACEUTICAL INC.-2012-021828

PATIENT
  Age: 46 Year
  Sex: Male
  Weight: 110 kg

DRUGS (5)
  1. INCIVEK [Suspect]
     Indication: HEPATITIS C
     Dosage: UNK
     Route: 048
     Dates: start: 20120622, end: 20120914
  2. RIBAVIRIN [Suspect]
     Indication: HEPATITIS C
     Dosage: 600 UNK, UNK
     Dates: start: 20120622, end: 20120920
  3. RIBAVIRIN [Suspect]
     Dosage: UNK
     Dates: start: 20120921
  4. PEGASYS [Suspect]
     Indication: HEPATITIS C
     Dosage: 180 ?g, UNK
     Route: 058
     Dates: start: 20120622, end: 20120920
  5. PEGASYS [Suspect]
     Dosage: 130 ?g, UNK
     Route: 058
     Dates: start: 20120921

REACTIONS (3)
  - Dyspnoea exertional [Not Recovered/Not Resolved]
  - Rash erythematous [Recovered/Resolved]
  - Pruritus [Recovered/Resolved]
